FAERS Safety Report 9407335 (Version 1)
Quarter: 2013Q3

REPORT INFORMATION
  Report Type: Spontaneous
  Country: US (occurrence: US)
  Receive Date: 20130718
  Receipt Date: 20130718
  Transmission Date: 20140515
  Serious: Yes (Other)
  Sender: FDA-Public Use
  Company Number: US-PFIZER INC-2013206409

PATIENT
  Age: 46 Year
  Sex: Female
  Weight: 72.56 kg

DRUGS (2)
  1. METHIMAZOLE [Suspect]
     Indication: THYROID DISORDER
     Dosage: UNK, 1X/DAY
     Dates: end: 2013
  2. TOPROL [Suspect]
     Indication: THYROID DISORDER
     Dosage: UNK

REACTIONS (3)
  - Depression [Unknown]
  - Renal pain [Unknown]
  - Off label use [Unknown]
